FAERS Safety Report 19880644 (Version 1)
Quarter: 2021Q3

REPORT INFORMATION
  Report Type: Spontaneous
  Country: DE (occurrence: DE)
  Receive Date: 20210924
  Receipt Date: 20210924
  Transmission Date: 20211014
  Serious: Yes (Other)
  Sender: FDA-Public Use
  Company Number: DE-MYLANLABS-2021M1064799

PATIENT
  Age: 61 Year
  Sex: Female
  Weight: 107 kg

DRUGS (9)
  1. EPIRUBICIN [Suspect]
     Active Substance: EPIRUBICIN
     Indication: INTRADUCTAL PROLIFERATIVE BREAST LESION
     Dosage: 4 CYCLES
     Route: 065
     Dates: start: 2019, end: 201907
  2. HERCEPTIN [Suspect]
     Active Substance: TRASTUZUMAB
     Indication: INTRADUCTAL PROLIFERATIVE BREAST LESION
     Dosage: WITH PERJETA, 18 CYCLES IN TOTAL
     Route: 042
     Dates: start: 20190731, end: 20200812
  3. HERCEPTIN [Suspect]
     Active Substance: TRASTUZUMAB
     Indication: BREAST CANCER
  4. PERJETA [Suspect]
     Active Substance: PERTUZUMAB
     Indication: INTRADUCTAL PROLIFERATIVE BREAST LESION
     Dosage: WITH HERCEPTIN, 18 CYCLES IN TOTAL
     Route: 042
     Dates: start: 20190731, end: 20200812
  5. RIVANOL [Concomitant]
     Active Substance: ETHACRIDINE LACTATE
  6. CYCLOPHOSPHAMIDE. [Suspect]
     Active Substance: CYCLOPHOSPHAMIDE
     Indication: INTRADUCTAL PROLIFERATIVE BREAST LESION
     Dosage: 4 CYCLES
     Route: 065
     Dates: start: 2019, end: 201907
  7. PACLITAXEL. [Suspect]
     Active Substance: PACLITAXEL
     Indication: INTRADUCTAL PROLIFERATIVE BREAST LESION
     Dosage: 12 CYCLES
     Route: 065
     Dates: start: 201901, end: 2019
  8. PERJETA [Suspect]
     Active Substance: PERTUZUMAB
     Indication: BREAST CANCER
  9. CORTISONE [Concomitant]
     Active Substance: CORTISONE

REACTIONS (7)
  - Onychoclasis [Recovering/Resolving]
  - Nail bed inflammation [Recovering/Resolving]
  - Cardiac failure [Recovering/Resolving]
  - Skin exfoliation [Recovering/Resolving]
  - Nail bed bleeding [Recovering/Resolving]
  - Inflammation [Recovering/Resolving]
  - Nail disorder [Recovering/Resolving]

NARRATIVE: CASE EVENT DATE: 202001
